FAERS Safety Report 7078032 (Version 4)
Quarter: 2014Q1

REPORT INFORMATION
  Report Type: Spontaneous
  Country: US (occurrence: US)
  Receive Date: 20090811
  Receipt Date: 20140212
  Transmission Date: 20141002
  Serious: Yes (Hospitalization, Other)
  Sender: FDA-Public Use
  Company Number: US-ROCHE-621410

PATIENT
  Age: 15 Year
  Sex: Female
  Weight: 40.8 kg

DRUGS (1)
  1. ACCUTANE [Suspect]
     Indication: ACNE
     Route: 048
     Dates: start: 19960628, end: 19961128

REACTIONS (11)
  - Small intestinal obstruction [Unknown]
  - Colitis ulcerative [Unknown]
  - Inflammatory bowel disease [Unknown]
  - Depression [Unknown]
  - Dermatitis [Recovered/Resolved]
  - Acne [Recovered/Resolved]
  - Otitis externa [Recovered/Resolved]
  - Bullous impetigo [Recovered/Resolved]
  - Dermatosis [Recovered/Resolved]
  - Bronchitis [Recovering/Resolving]
  - Aphthous stomatitis [Unknown]
